FAERS Safety Report 14216404 (Version 2)
Quarter: 2018Q1

REPORT INFORMATION
  Report Type: Spontaneous
  Country: US (occurrence: US)
  Receive Date: 20171122
  Receipt Date: 20180118
  Transmission Date: 20180508
  Serious: No
  Sender: FDA-Public Use
  Company Number: US-ASTRAZENECA-2017SF17688

PATIENT
  Age: 26915 Day
  Sex: Female
  Weight: 76.7 kg

DRUGS (1)
  1. BYDUREON [Suspect]
     Active Substance: EXENATIDE
     Indication: TYPE 2 DIABETES MELLITUS
     Route: 058
     Dates: start: 20171108

REACTIONS (5)
  - Limb injury [Recovered/Resolved]
  - Intentional product misuse [Unknown]
  - Traumatic haemorrhage [Recovered/Resolved]
  - Feeling abnormal [Unknown]
  - Wrong technique in device usage process [Unknown]

NARRATIVE: CASE EVENT DATE: 20171108
